FAERS Safety Report 14432611 (Version 1)
Quarter: 2018Q1

REPORT INFORMATION
  Report Type: Other
  Country: FR (occurrence: FR)
  Receive Date: 20180124
  Receipt Date: 20180124
  Transmission Date: 20180509
  Serious: Yes (Hospitalization)
  Sender: FDA-Public Use
  Company Number: FR-ALSI-201800055

PATIENT
  Age: 25 Year
  Sex: Male

DRUGS (1)
  1. NITROUS OXIDE. [Suspect]
     Active Substance: NITROUS OXIDE
     Indication: SUBSTANCE USE
     Route: 055
     Dates: start: 20150101, end: 20170804

REACTIONS (6)
  - Ataxia [Recovering/Resolving]
  - Dysaesthesia [Recovering/Resolving]
  - Hypoaesthesia [Recovering/Resolving]
  - Balance disorder [Recovering/Resolving]
  - Substance use [Unknown]
  - Myelitis [Recovering/Resolving]
